FAERS Safety Report 6192276-8 (Version None)
Quarter: 2009Q2

REPORT INFORMATION
  Report Type: 
  Country: None (occurrence: None)
  Receive Date: 20090515
  Receipt Date: 20090508
  Transmission Date: 20091009
  Serious: Yes (Other)
  Sender: FDA-Public Use
  Company Number: PHHY2009GB08247

PATIENT
  Sex: Female
  Weight: 89 kg

DRUGS (15)
  1. DIOVAN HCT [Suspect]
     Indication: HYPERTENSION
     Dosage: 160/12.5 MG
     Route: 048
     Dates: start: 20080318, end: 20090221
  2. ANTIHISTAMINES [Concomitant]
  3. PIRITON [Concomitant]
     Dosage: UNK
  4. MULTI-VITAMINS [Concomitant]
  5. HAWTHORN [Concomitant]
  6. BRICANYL [Concomitant]
     Indication: CHRONIC OBSTRUCTIVE PULMONARY DISEASE
     Dosage: 500 UG, PRN
     Dates: start: 20081201
  7. ACETAMINOPHEN W/ CODEINE [Concomitant]
  8. EZETIMIBE [Concomitant]
     Indication: BLOOD CHOLESTEROL INCREASED
     Dosage: 10MG DAILY
     Route: 048
     Dates: start: 20080730
  9. OXIS TURBUHALER [Concomitant]
     Indication: CHRONIC OBSTRUCTIVE PULMONARY DISEASE
     Dosage: 2 PUFFS BID
     Dates: start: 20090403
  10. PULMICORT-100 [Concomitant]
     Indication: CHRONIC OBSTRUCTIVE PULMONARY DISEASE
     Dosage: 2 DF, BID
     Dates: start: 20090403
  11. PREDNISOLONE [Concomitant]
     Indication: HYPERSENSITIVITY
     Dosage: 1MG-2MG
     Route: 048
     Dates: start: 20080826
  12. BENDROFLUMETHIAZIDE [Concomitant]
     Indication: HYPERTENSION
     Dosage: 2.5MG DAILY
     Route: 048
     Dates: start: 20090505
  13. SENNA [Concomitant]
     Indication: CONSTIPATION
     Dosage: 15 MG, UNK
     Route: 048
     Dates: start: 20090403
  14. CROMOLYN SODIUM [Concomitant]
     Indication: RHINITIS
     Dosage: 1 PUFF BID
     Dates: start: 20090403
  15. DIFFLAM [Concomitant]
     Dosage: 3% AS DIRECTED
     Route: 061
     Dates: start: 20090403

REACTIONS (15)
  - ABDOMINAL DISCOMFORT [None]
  - ABDOMINAL DISTENSION [None]
  - ABDOMINAL PAIN [None]
  - ANGIOEDEMA [None]
  - BACK PAIN [None]
  - BLOOD PRESSURE INADEQUATELY CONTROLLED [None]
  - DRUG INEFFECTIVE [None]
  - FATIGUE [None]
  - LIP SWELLING [None]
  - MUSCULOSKELETAL PAIN [None]
  - NECK PAIN [None]
  - OEDEMA MOUTH [None]
  - RENAL DISORDER [None]
  - SWELLING FACE [None]
  - SWOLLEN TONGUE [None]
